FAERS Safety Report 9941293 (Version 1)
Quarter: 2014Q1

REPORT INFORMATION
  Report Type: Report from Study
  Country: US (occurrence: US)
  Receive Date: 20140303
  Receipt Date: 20140303
  Transmission Date: 20141002
  Serious: No
  Sender: FDA-Public Use
  Company Number: US-ABBVIE-13P-163-1042742-00

PATIENT
  Age: 54 Year
  Sex: Female

DRUGS (5)
  1. HUMIRA [Suspect]
     Indication: CROHN^S DISEASE
     Dates: start: 201211
  2. HYDROCODONE [Concomitant]
     Indication: CROHN^S DISEASE
     Dosage: 10/325MG, 4-6 TIMES PER DAY
  3. HYDROCODONE [Concomitant]
     Indication: HIDRADENITIS
  4. ZOLPIDEM [Concomitant]
     Indication: INSOMNIA
  5. TRAZODONE [Concomitant]
     Indication: INSOMNIA
     Dosage: 2 TABS AT NIGHT

REACTIONS (3)
  - Bowel movement irregularity [Not Recovered/Not Resolved]
  - Wrong technique in drug usage process [Not Recovered/Not Resolved]
  - Incorrect dose administered [Not Recovered/Not Resolved]
